FAERS Safety Report 21993004 (Version 1)
Quarter: 2023Q1

REPORT INFORMATION
  Report Type: Spontaneous
  Country: US (occurrence: US)
  Receive Date: 20230215
  Receipt Date: 20230215
  Transmission Date: 20230417
  Serious: Yes (Hospitalization, Other)
  Sender: FDA-Public Use
  Company Number: US-SA-SAC20230214000593

PATIENT
  Sex: Female

DRUGS (1)
  1. CERDELGA [Suspect]
     Active Substance: ELIGLUSTAT
     Indication: Gaucher^s disease
     Dosage: 84 MG, BID (TWICE A DAY)
     Route: 048
     Dates: start: 20210506

REACTIONS (5)
  - Loss of consciousness [Unknown]
  - Malaise [Unknown]
  - Condition aggravated [Unknown]
  - Vomiting [Unknown]
  - Liver transplant [Unknown]
